FAERS Safety Report 8956771 (Version 1)
Quarter: 2012Q4

REPORT INFORMATION
  Report Type: 
  Country: US (occurrence: US)
  Receive Date: 20121210
  Receipt Date: 20121210
  Transmission Date: 20130627
  Serious: Yes (Other)
  Sender: FDA-Public Use
  Company Number: CHPA2012US024567

PATIENT
  Age: 40 Year
  Sex: Female

DRUGS (1)
  1. THERAFLU MAX-D SEVERE COLD + FLU [Suspect]
     Indication: PNEUMONIA
     Dosage: AS DIRECTED
     Route: 048
     Dates: start: 201112, end: 201112

REACTIONS (2)
  - Pneumonia [Recovered/Resolved]
  - Off label use [Unknown]
